FAERS Safety Report 5215711-8 (Version None)
Quarter: 2007Q1

REPORT INFORMATION
  Report Type: 
  Country: None (occurrence: None)
  Receive Date: 20070123
  Receipt Date: 20070118
  Transmission Date: 20070707
  Serious: Yes (Other)
  Sender: FDA-Public Use
  Company Number: FR-BRISTOL-MYERS SQUIBB COMPANY-13624234

PATIENT
  Age: 39 Year
  Sex: Female

DRUGS (8)
  1. REYATAZ [Suspect]
     Indication: HIV INFECTION
     Route: 048
     Dates: start: 20040601, end: 20061221
  2. NORVIR [Concomitant]
     Indication: HIV INFECTION
     Dates: start: 20040601, end: 20061221
  3. EPIVIR [Concomitant]
     Indication: HIV INFECTION
     Dates: start: 20040601
  4. VIREAD [Concomitant]
     Indication: HIV INFECTION
     Dates: start: 20040601
  5. TRUVADA [Concomitant]
     Dates: end: 20061221
  6. LEVOTHYROXINE SODIUM [Concomitant]
  7. COMBIVIR [Concomitant]
     Dates: start: 20061221
  8. INVIRASE [Concomitant]
     Dates: start: 20061221

REACTIONS (2)
  - ABORTION INDUCED [None]
  - ECTOPIC PREGNANCY [None]
